FAERS Safety Report 7518062-1 (Version None)
Quarter: 2011Q2

REPORT INFORMATION
  Report Type: 
  Country: None (occurrence: None)
  Receive Date: 20110531
  Receipt Date: 20110531
  Transmission Date: 20111010
  Serious: Yes (Other)
  Sender: FDA-Public Use
  Company Number: None

PATIENT

DRUGS (1)
  1. ZOCOR [Suspect]

REACTIONS (2)
  - EYELID OEDEMA [None]
  - SWELLING FACE [None]
